FAERS Safety Report 26091926 (Version 1)
Quarter: 2025Q4

REPORT INFORMATION
  Report Type: Spontaneous
  Country: EU (occurrence: EU)
  Receive Date: 20251126
  Receipt Date: 20251126
  Transmission Date: 20260118
  Serious: Yes (Disabling, Other)
  Sender: BAXTER
  Company Number: EU-BAXTER-2025BAX024399

PATIENT
  Age: 63 Year
  Sex: Female

DRUGS (3)
  1. CYCLOPHOSPHAMIDE [Suspect]
     Active Substance: CYCLOPHOSPHAMIDE
     Indication: Ocular pemphigoid
     Dosage: INFUSIONS (25 MG/KG) WERE ADMINISTERED FOR SIX MONTHS
     Route: 042
  2. CORTICOSTEROID NOS [Concomitant]
     Active Substance: CORTICOSTEROID NOS
     Indication: Ocular pemphigoid
     Route: 048
  3. DEXAMETHASONE [Concomitant]
     Active Substance: DEXAMETHASONE
     Indication: Ocular pemphigoid
     Dosage: UNK
     Route: 061

REACTIONS (5)
  - Cataract [Recovered/Resolved]
  - Cataract nuclear [Recovered/Resolved]
  - Cataract subcapsular [Recovered/Resolved]
  - Intraocular pressure increased [Recovered/Resolved]
  - Disease progression [Recovered/Resolved]
